FAERS Safety Report 7574280-8 (Version None)
Quarter: 2011Q2

REPORT INFORMATION
  Report Type: 
  Country: None (occurrence: None)
  Receive Date: 20110627
  Receipt Date: 20110127
  Transmission Date: 20111010
  Serious: Yes (Other)
  Sender: FDA-Public Use
  Company Number: US-BAYER-201030498NA

PATIENT
  Age: 16 Year
  Sex: Female
  Weight: 65.76 kg

DRUGS (12)
  1. LORTAB [Concomitant]
     Indication: ABDOMINAL PAIN
     Dosage: 5 MG, Q4HR
     Route: 048
     Dates: start: 20060918
  2. NEXIUM [Concomitant]
  3. YAZ [Suspect]
     Indication: PRODUCT USED FOR UNKNOWN INDICATION
     Dosage: UNK UNK, UNK
     Route: 048
     Dates: start: 20060201
  4. DEPO-PROVERA [Concomitant]
     Dosage: UNK
     Dates: start: 20061025
  5. HYDROCODONE [Concomitant]
     Indication: PAIN
     Dosage: 1 DF, QD
  6. DEPO-PROVERA [Concomitant]
     Dosage: UNK
     Dates: start: 20060918, end: 20061025
  7. DARVOCET [Concomitant]
     Indication: ABDOMINAL PAIN
  8. YASMIN [Suspect]
     Indication: PRODUCT USED FOR UNKNOWN INDICATION
     Dosage: UNK
     Route: 048
     Dates: start: 20060201
  9. PROZAC [Concomitant]
     Indication: PAIN
  10. PRILOSEC [Concomitant]
     Dosage: UNK
     Dates: start: 20060918
  11. DICYCLOMINE [Concomitant]
  12. PROTONIX [Concomitant]
     Dosage: UNK
     Dates: start: 20060918

REACTIONS (3)
  - BILIARY DYSKINESIA [None]
  - CHOLECYSTECTOMY [None]
  - CHOLECYSTITIS CHRONIC [None]
